FAERS Safety Report 26123232 (Version 2)
Quarter: 2025Q4

REPORT INFORMATION
  Report Type: Spontaneous
  Country: US (occurrence: US)
  Receive Date: 20251204
  Receipt Date: 20251208
  Transmission Date: 20260118
  Serious: No
  Sender: Hugel Aesthetics
  Company Number: US-Hugel Aesthetics-2189860

PATIENT
  Sex: Female

DRUGS (2)
  1. LETYBO [Suspect]
     Active Substance: LETIBOTULINUMTOXINA-WLBG
     Indication: Product use in unapproved indication
  2. Drug Name: NEUROTOXIN A?BOTULINUM?Generic Name: BOTULINUM TOXIN?TYPE A [Concomitant]

REACTIONS (1)
  - Vasodilatation [Unknown]

NARRATIVE: CASE EVENT DATE: 20250818
